FAERS Safety Report 10039514 (Version 1)
Quarter: 2014Q1

REPORT INFORMATION
  Report Type: Report from Study
  Country: US (occurrence: US)
  Receive Date: 20140326
  Receipt Date: 20140326
  Transmission Date: 20141002
  Serious: Yes (Other)
  Sender: FDA-Public Use
  Company Number: PHEH2014US005851

PATIENT
  Sex: Male

DRUGS (5)
  1. DIOVAN HCT [Suspect]
  2. DIOVAN [Suspect]
     Dosage: 1 DF, BID
  3. METOPROLOL [Concomitant]
  4. AMLODIPINE [Concomitant]
  5. EPLERENONE [Concomitant]

REACTIONS (2)
  - Cerebrovascular accident [Unknown]
  - Blood pressure fluctuation [Unknown]
